FAERS Safety Report 4567179-2 (Version None)
Quarter: 2005Q1

REPORT INFORMATION
  Report Type: 
  Country: None (occurrence: None)
  Receive Date: 20050201
  Receipt Date: 20050127
  Transmission Date: 20050727
  Serious: Yes (Life-Threatening, Hospitalization, Disabling, Other)
  Sender: FDA-Public Use
  Company Number: US-GLAXOSMITHKLINE-A0542665A

PATIENT
  Age: 63 Year
  Sex: Male

DRUGS (6)
  1. ZIAGEN [Suspect]
     Indication: HIV INFECTION
     Route: 048
     Dates: end: 20050120
  2. KALETRA [Concomitant]
  3. VIDEX [Concomitant]
  4. ZERIT [Concomitant]
  5. LIPITOR [Concomitant]
  6. ACYCLOVIR [Concomitant]

REACTIONS (11)
  - ABDOMINAL PAIN [None]
  - ABNORMAL FAECES [None]
  - ANAEMIA [None]
  - ASCITES [None]
  - ASTHENIA [None]
  - FACE OEDEMA [None]
  - FAECES PALE [None]
  - HEPATIC ENZYME INCREASED [None]
  - JAUNDICE [None]
  - PANCREATIC ENZYMES INCREASED [None]
  - RENAL FAILURE [None]
